FAERS Safety Report 13039767 (Version 1)
Quarter: 2016Q4

REPORT INFORMATION
  Report Type: Spontaneous
  Country: US (occurrence: US)
  Receive Date: 20161217
  Receipt Date: 20161217
  Transmission Date: 20170207
  Serious: Yes (Hospitalization)
  Sender: FDA-Public Use
  Company Number: None

PATIENT
  Age: 50 Year
  Sex: Male
  Weight: 99.8 kg

DRUGS (16)
  1. POTASSIUM CHLORIDE SA [Concomitant]
  2. SOFOSBUVIR/VELPATASVIR 400-100MG GILEAD [Suspect]
     Active Substance: SOFOSBUVIR\VELPATASVIR
     Route: 048
     Dates: start: 20160928
  3. CARVEDILOL (COREG) [Concomitant]
  4. COLCHICINE. [Concomitant]
     Active Substance: COLCHICINE
  5. COUMADIN [Concomitant]
     Active Substance: WARFARIN SODIUM
  6. FEBUXOSTAT (ULORIC) [Concomitant]
  7. XANAX [Concomitant]
     Active Substance: ALPRAZOLAM
  8. FOLIC ACID (FOLVITE) [Concomitant]
  9. HYDROXYUREA (HYDREA) [Concomitant]
  10. ISOSORBIDE DINITRATE (ISORDIL) [Concomitant]
  11. LANOXIN [Concomitant]
     Active Substance: DIGOXIN
  12. TORSEMIDE (DEMADEX) [Concomitant]
  13. ALLOPURINOL (ZYLOPRIM) [Concomitant]
  14. LEVOTHYROXINE (SYNTHROID, LEVOTHROID) [Concomitant]
  15. HYDRALAZINE (APRESOLINE) [Concomitant]
  16. ALBUTEROL (PROVENTIL HFA) [Concomitant]

REACTIONS (10)
  - Hepatitis alcoholic [None]
  - Cardiac failure congestive [None]
  - Chest pain [None]
  - Haematoma [None]
  - International normalised ratio increased [None]
  - Contusion [None]
  - Viral upper respiratory tract infection [None]
  - Pancreatitis chronic [None]
  - Thrombocytopenia [None]
  - Chest discomfort [None]

NARRATIVE: CASE EVENT DATE: 20161210
